FAERS Safety Report 4847829-3 (Version None)
Quarter: 2005Q4

REPORT INFORMATION
  Report Type: 
  Country: None (occurrence: None)
  Receive Date: 20051206
  Receipt Date: 20051123
  Transmission Date: 20060501
  Serious: Yes (Hospitalization, Other)
  Sender: FDA-Public Use
  Company Number: 2005161102

PATIENT
  Age: 73 Year
  Sex: Female

DRUGS (9)
  1. LIPITOR [Suspect]
     Indication: BLOOD CHOLESTEROL INCREASED
     Dosage: 10 MG (10 MG,1 IN 1 D), UNKNOWN
     Route: 065
  2. PROCARDIA [Suspect]
     Indication: HYPERTENSION
     Dosage: 60 MG (30 MG,2 IN 1 D), UNKNOWN
     Route: 065
     Dates: start: 20050101
  3. ALL OTHER THERAPEUTIC PRODUCTS (ALL OTHER THERAPEUTIC PRODUCTS) [Suspect]
     Indication: ILL-DEFINED DISORDER
     Dosage: UNKNOWN
     Route: 065
  4. ALL OTHER THERAPEUTIC PRODUCTS (ALL OTHER THERAPEUTIC PRODUCTS) [Concomitant]
  5. IBUPROFEN [Concomitant]
  6. FOLIC ACID [Concomitant]
  7. TUMS (CALCIUM CARBONATE) [Concomitant]
  8. MIRALAX [Concomitant]
  9. METHOTREXATE [Concomitant]

REACTIONS (4)
  - HYPERTENSION [None]
  - POST PROCEDURAL NAUSEA [None]
  - RHEUMATOID ARTHRITIS [None]
  - WEIGHT DECREASED [None]
